FAERS Safety Report 23040437 (Version 1)
Quarter: 2023Q4

REPORT INFORMATION
  Report Type: Other
  Country: US (occurrence: US)
  Receive Date: 20231006
  Receipt Date: 20231006
  Transmission Date: 20240109
  Serious: No
  Sender: FDA-Public Use
  Company Number: US-TRAVERE-2023TVT00188

PATIENT
  Age: 8 Month
  Sex: Female

DRUGS (1)
  1. CHOLIC ACID [Suspect]
     Active Substance: CHOLIC ACID
     Indication: Congenital anomaly
     Route: 048
     Dates: start: 20230120, end: 20230526

REACTIONS (1)
  - Hepatic enzyme increased [Recovering/Resolving]
